FAERS Safety Report 12200247 (Version 1)
Quarter: 2016Q1

REPORT INFORMATION
  Report Type: Spontaneous
  Country: CO (occurrence: CO)
  Receive Date: 20160322
  Receipt Date: 20160322
  Transmission Date: 20160526
  Serious: Yes (Death, Hospitalization, Other)
  Sender: FDA-Public Use
  Company Number: CO-JNJFOC-20151204476

PATIENT
  Age: 48 Year
  Sex: Male
  Weight: 66 kg

DRUGS (1)
  1. IMBRUVICA [Suspect]
     Active Substance: IBRUTINIB
     Indication: CHRONIC LYMPHOCYTIC LEUKAEMIA
     Route: 048
     Dates: start: 20151127, end: 20160307

REACTIONS (5)
  - Ear infection [Fatal]
  - Colitis [Fatal]
  - Myocardial infarction [Fatal]
  - Oral candidiasis [Unknown]
  - Erythema [Unknown]

NARRATIVE: CASE EVENT DATE: 20160101
